FAERS Safety Report 20516092 (Version 1)
Quarter: 2022Q1

REPORT INFORMATION
  Report Type: Spontaneous
  Country: US (occurrence: US)
  Receive Date: 20220225
  Receipt Date: 20220225
  Transmission Date: 20220424
  Serious: Yes (Hospitalization, Other)
  Sender: FDA-Public Use
  Company Number: US-CIPLA LTD.-2022US01024

PATIENT

DRUGS (3)
  1. BUPROPION [Suspect]
     Active Substance: BUPROPION
     Dosage: 27 GRAMS
     Route: 048
  2. AMLODIPINE [Suspect]
     Active Substance: AMLODIPINE BESYLATE
     Dosage: UNK
     Route: 048
  3. PROPRANOLOL [Suspect]
     Active Substance: PROPRANOLOL HYDROCHLORIDE
     Dosage: UNK
     Route: 048

REACTIONS (13)
  - Cardiogenic shock [Recovering/Resolving]
  - Vasoplegia syndrome [Recovering/Resolving]
  - Seizure [Recovering/Resolving]
  - Pupil fixed [Recovering/Resolving]
  - Somnolence [Recovering/Resolving]
  - Encephalopathy [Recovering/Resolving]
  - Brain stem syndrome [Recovering/Resolving]
  - Areflexia [Recovering/Resolving]
  - Unresponsive to stimuli [Recovering/Resolving]
  - Haemodynamic instability [Recovering/Resolving]
  - Toxicity to various agents [Recovering/Resolving]
  - Intentional overdose [Unknown]
  - Bradycardia [Recovering/Resolving]
